FAERS Safety Report 4746004-0 (Version None)
Quarter: 2005Q3

REPORT INFORMATION
  Report Type: 
  Country: None (occurrence: None)
  Receive Date: 20050816
  Receipt Date: 20050804
  Transmission Date: 20060218
  Serious: Yes (Other)
  Sender: FDA-Public Use
  Company Number: US-KINGPHARMUSA00001-K200501049

PATIENT
  Sex: Male

DRUGS (2)
  1. TILADE [Suspect]
     Indication: COUGH
     Dates: start: 20050720, end: 20050701
  2. SERETIDE ^ALLEN + HANBURYS LTD^ [Suspect]
     Indication: VIRAL INFECTION

REACTIONS (4)
  - EUSTACHIAN TUBE DISORDER [None]
  - HEARING IMPAIRED [None]
  - OEDEMA MUCOSAL [None]
  - SWELLING [None]
